FAERS Safety Report 9103798 (Version 1)
Quarter: 2013Q1

REPORT INFORMATION
  Report Type: Spontaneous
  Country: TR (occurrence: TR)
  Receive Date: 20130219
  Receipt Date: 20130219
  Transmission Date: 20140127
  Serious: Yes (Death)
  Sender: FDA-Public Use
  Company Number: TR-CUBIST PHARMACEUTICAL, INC.-2012CBST000087

PATIENT
  Age: 28 Year
  Sex: Female
  Weight: 50 kg

DRUGS (5)
  1. CUBICIN [Suspect]
     Indication: ENDOCARDITIS
     Route: 042
  2. PREDNOL                            /00049601/ [Concomitant]
     Indication: PRODUCT USED FOR UNKNOWN INDICATION
  3. FLUCONAZOLE [Concomitant]
     Indication: PRODUCT USED FOR UNKNOWN INDICATION
  4. IMIPENEM [Concomitant]
     Indication: PRODUCT USED FOR UNKNOWN INDICATION
  5. VANCOMYCIN [Concomitant]
     Indication: PRODUCT USED FOR UNKNOWN INDICATION

REACTIONS (1)
  - Toxic epidermal necrolysis [Fatal]
